FAERS Safety Report 10179821 (Version 2)
Quarter: 2014Q2

REPORT INFORMATION
  Report Type: Spontaneous
  Country: US (occurrence: US)
  Receive Date: 20140519
  Receipt Date: 20140519
  Transmission Date: 20141212
  Serious: No
  Sender: FDA-Public Use
  Company Number: US-AMGEN INC.-USASP2013069082

PATIENT
  Age: 94 Year
  Sex: Female
  Weight: 48.07 kg

DRUGS (1)
  1. PROLIA [Suspect]
     Indication: OSTEOPOROSIS POSTMENOPAUSAL
     Dosage: 60 MG/ML, UNK
     Route: 065
     Dates: start: 20130417

REACTIONS (3)
  - Injection site pain [Recovered/Resolved]
  - Injection site rash [Unknown]
  - Injection site bruising [Unknown]
